FAERS Safety Report 6651706-5 (Version None)
Quarter: 2010Q1

REPORT INFORMATION
  Report Type: 
  Country: None (occurrence: None)
  Receive Date: 20100325
  Receipt Date: 20100312
  Transmission Date: 20100710
  Serious: Yes (Other)
  Sender: FDA-Public Use
  Company Number: ZA-BRISTOL-MYERS SQUIBB COMPANY-15029580

PATIENT
  Age: 30 Year
  Sex: Male

DRUGS (7)
  1. EFAVIRENZ CAPS [Suspect]
     Indication: HIV INFECTION
     Dosage: RANDOMIZED ON 22DEC09
     Route: 048
     Dates: start: 20100113
  2. STAVUDINE [Suspect]
     Dates: start: 20100113
  3. SULFAMETHOXAZOLE AND TRIMETHOPRIM [Suspect]
     Dates: start: 20091215
  4. ISONIAZID [Suspect]
     Dates: start: 20091215, end: 20100311
  5. LAMIVUDINE [Suspect]
     Dates: start: 20100113
  6. PYRIDOXINE [Suspect]
     Dates: start: 20091215
  7. RIFABUTIN [Suspect]
     Dosage: 15DEC09 TO 12JAN10 13JAN10 TO 10FEB10 11FEB10 TO 11MAR10
     Dates: start: 20091215, end: 20100311

REACTIONS (1)
  - NEUTROPENIA [None]
